FAERS Safety Report 24574188 (Version 1)
Quarter: 2024Q4

REPORT INFORMATION
  Report Type: Spontaneous
  Country: US (occurrence: US)
  Receive Date: 20241104
  Receipt Date: 20241104
  Transmission Date: 20250115
  Serious: No
  Sender: ELI LILLY AND COMPANY
  Company Number: US-ELI_LILLY_AND_COMPANY-US202410022333

PATIENT
  Age: 59 Year

DRUGS (1)
  1. CYMBALTA [Suspect]
     Active Substance: DULOXETINE HYDROCHLORIDE
     Indication: Neuropathy peripheral
     Dosage: UNK, UNKNOWN
     Route: 065

REACTIONS (4)
  - Acquired immunodeficiency syndrome [Unknown]
  - Arthritis [Unknown]
  - Osteoporosis [Unknown]
  - Off label use [Unknown]
